FAERS Safety Report 7344090-5 (Version None)
Quarter: 2011Q1

REPORT INFORMATION
  Report Type: 
  Country: None (occurrence: None)
  Receive Date: 20110310
  Receipt Date: 20100607
  Transmission Date: 20110831
  Serious: No
  Sender: FDA-Public Use
  Company Number: A0863446A

PATIENT
  Sex: Female

DRUGS (2)
  1. BLOOD PRESSURE MEDICATION [Concomitant]
  2. NICORETTE [Suspect]

REACTIONS (4)
  - DRUG ADMINISTRATION ERROR [None]
  - GINGIVAL DISORDER [None]
  - GINGIVAL PAIN [None]
  - DIZZINESS [None]
